FAERS Safety Report 9927347 (Version 2)
Quarter: 2014Q1

REPORT INFORMATION
  Report Type: Spontaneous
  Country: IE (occurrence: IE)
  Receive Date: 20140226
  Receipt Date: 20140325
  Transmission Date: 20141002
  Serious: Yes (Hospitalization, Other)
  Sender: FDA-Public Use
  Company Number: US-ASTRAZENECA-2014SE12417

PATIENT
  Age: 74 Day
  Sex: Male

DRUGS (3)
  1. SYNAGIS [Suspect]
     Indication: PREMATURE BABY
     Route: 030
     Dates: start: 20140103, end: 20140103
  2. SYNAGIS [Suspect]
     Indication: PREMATURE BABY
     Route: 030
     Dates: start: 20140214, end: 20140214
  3. ABIDEC [Concomitant]
     Indication: PRODUCT USED FOR UNKNOWN INDICATION

REACTIONS (6)
  - Bronchiolitis [Recovered/Resolved]
  - Respiratory tract congestion [Recovering/Resolving]
  - Decreased appetite [Recovering/Resolving]
  - Candida infection [Recovered/Resolved]
  - Breath sounds abnormal [Recovering/Resolving]
  - Nasal congestion [Unknown]
